FAERS Safety Report 13764520 (Version 1)
Quarter: 2017Q3

REPORT INFORMATION
  Report Type: Spontaneous
  Country: US (occurrence: US)
  Receive Date: 20170718
  Receipt Date: 20170718
  Transmission Date: 20171127
  Serious: No
  Sender: FDA-Public Use
  Company Number: US-BAUSCH-BL-2017-003417

PATIENT
  Sex: Male
  Weight: 97.61 kg

DRUGS (7)
  1. XIFAXAN [Suspect]
     Active Substance: RIFAXIMIN
     Route: 065
     Dates: end: 2017
  2. PROPRANOLOL [Concomitant]
     Active Substance: PROPRANOLOL HYDROCHLORIDE
     Indication: URINARY TRACT DISORDER
     Dates: start: 2017
  3. XIFAXAN [Suspect]
     Active Substance: RIFAXIMIN
     Indication: CONFUSIONAL STATE
     Route: 065
     Dates: start: 2014, end: 2014
  4. LACTULOSE. [Concomitant]
     Active Substance: LACTULOSE
     Indication: CONFUSIONAL STATE
     Dosage: 2-3 TIMES PER DAY AS NEEDED
     Dates: start: 2014
  5. FOLIC ACID. [Concomitant]
     Active Substance: FOLIC ACID
     Indication: DYSPEPSIA
  6. VITAMIN D3 [Concomitant]
     Active Substance: CHOLECALCIFEROL
     Indication: BONE DISORDER
     Dates: start: 2016
  7. OMEPRAZOLE. [Concomitant]
     Active Substance: OMEPRAZOLE
     Indication: PRODUCT USED FOR UNKNOWN INDICATION
     Dates: start: 201611

REACTIONS (3)
  - Tremor [Not Recovered/Not Resolved]
  - Treatment noncompliance [Unknown]
  - Off label use [Recovered/Resolved]

NARRATIVE: CASE EVENT DATE: 2014
